FAERS Safety Report 5095207-7 (Version None)
Quarter: 2006Q3

REPORT INFORMATION
  Report Type: 
  Country: None (occurrence: None)
  Receive Date: 20060901
  Receipt Date: 20060828
  Transmission Date: 20061208
  Serious: Yes (Other)
  Sender: FDA-Public Use
  Company Number: JP-JPN-A200603386

PATIENT
  Sex: Male

DRUGS (1)
  1. FLUNASE (JAPAN) [Suspect]
     Route: 045
     Dates: start: 20060824

REACTIONS (3)
  - COUGH [None]
  - PHARYNGOLARYNGEAL PAIN [None]
  - RESPIRATORY DEPRESSION [None]
